FAERS Safety Report 7381593-1 (Version None)
Quarter: 2011Q1

REPORT INFORMATION
  Report Type: 
  Country: None (occurrence: None)
  Receive Date: 20110329
  Receipt Date: 20101004
  Transmission Date: 20110831
  Serious: Yes (Hospitalization)
  Sender: FDA-Public Use
  Company Number: US-BAYER-201014563NA

PATIENT
  Sex: Female
  Weight: 100 kg

DRUGS (17)
  1. OMEPRAZOLE [Concomitant]
     Route: 048
  2. UNCODEABLE ^UNCLASSIFIABLE^ [Concomitant]
     Dosage: (200 PUFFS)  TWO PUFFS EVERY FOUR HOURS PER NEEDED 21-MAR-2008
     Route: 055
  3. AZITHROMYCIN [Concomitant]
     Dosage: 27-APR-2006
     Route: 065
  4. ALBUTEROL [Concomitant]
     Dosage: ^(200 PUFFS) 17GM INHALE 2 PUFFS UTD WITH SPACER PO 010 AND PRN 04/21/2006^
     Route: 055
     Dates: start: 20020601
  5. HYDROCODONE BITARTRATE AND ACETAMINOPHEN [Concomitant]
     Dosage: 5MG/500MG. 28-FEB-2008. EVERY 4 TO 6 HOURS
     Route: 048
  6. NAPROXEN [Concomitant]
     Dosage: 07-JUL-2006
     Route: 065
  7. CHANTIX [Concomitant]
     Dosage: 21-MAR-2008
     Route: 065
  8. LAMISIL [Concomitant]
     Dosage: 24-JAN-2007
     Route: 048
  9. UNCODEABLE ^UNCLASSIFIABLE^ [Concomitant]
     Dosage: 31-JAN-2004
     Route: 065
  10. OCELLA [Suspect]
     Dosage: UNK
     Route: 048
     Dates: start: 20030301, end: 20080715
  11. YASMIN [Suspect]
     Dosage: PHARMACY RECORDS: 18-DEC-2003 TO 18-FEB-2007
     Route: 048
     Dates: start: 20030301, end: 20080715
  12. OMEPRAZOLE [Concomitant]
     Dosage: 08-FEB-2008
     Route: 048
  13. AMOXICILLIN AND CLAVULANATE POTASSIUM [Concomitant]
     Dosage: 1750 MG (DAILY DOSE), BID, ORAL
     Route: 048
  14. HYDROCODONE BITARTRATE AND ACETAMINOPHEN [Concomitant]
     Indication: PAIN
     Dosage: 5MG/500MG. 12-FEB-2008.
     Route: 048
  15. AZITHROMYCIN [Concomitant]
     Dosage: TWO TABLETS AT ONCE
  16. PREDNISONE [Concomitant]
     Dosage: 21-APR-2006
     Route: 065
  17. MERIDIA [Concomitant]
     Dosage: 06-AUG-2004, 25-OCT-2005, 27-OCT-2005, 01-NOV-2005, 2005, 07-JUL-2006
     Route: 065

REACTIONS (5)
  - PANCREATITIS [None]
  - CHOLELITHIASIS [None]
  - BILE DUCT STONE [None]
  - GALLBLADDER DISORDER [None]
  - MENTAL DISORDER [None]
